FAERS Safety Report 9320517 (Version 9)
Quarter: 2014Q2

REPORT INFORMATION
  Report Type: Spontaneous
  Country: GB (occurrence: GB)
  Receive Date: 20130531
  Receipt Date: 20140508
  Transmission Date: 20141212
  Serious: Yes (Death, Life-Threatening, Hospitalization, Other)
  Sender: FDA-Public Use
  Company Number: GB-009507513-1305GBR015129

PATIENT
  Age: 49 Year
  Sex: Female
  Weight: 68 kg

DRUGS (9)
  1. ISENTRESS [Suspect]
     Indication: HIV INFECTION
     Dosage: 400 MG, 2/1DAY
     Route: 048
     Dates: start: 20130308, end: 20130515
  2. ACYCLOVIR [Suspect]
     Indication: PROPHYLAXIS
     Dosage: 400 MG, BID
     Route: 048
     Dates: start: 201008, end: 20130515
  3. LAMIVUDINE [Suspect]
     Indication: HIV INFECTION
     Dosage: 150 MG, BID
     Route: 048
     Dates: start: 20130308, end: 20130515
  4. PREZISTA [Suspect]
     Indication: HIV INFECTION
     Dosage: 600 MG, BID
     Route: 048
     Dates: start: 20110505, end: 20121002
  5. INTELENCE [Suspect]
     Indication: HIV INFECTION
     Dosage: 200 MG, BID
     Route: 048
     Dates: start: 20130308, end: 20130515
  6. ETRAVIRINE [Concomitant]
     Indication: HIV INFECTION
     Dosage: 200 MG, BID
     Dates: start: 20130308, end: 20130515
  7. ADCAL-D3 [Concomitant]
     Indication: PRODUCT USED FOR UNKNOWN INDICATION
     Dosage: UNK, QD
  8. FERROUS SULFATE [Concomitant]
     Indication: PRODUCT USED FOR UNKNOWN INDICATION
     Dosage: 200 MG, BID
     Route: 048
  9. FOLIC ACID [Concomitant]
     Indication: PRODUCT USED FOR UNKNOWN INDICATION
     Dosage: 5 MG, QD
     Route: 048

REACTIONS (8)
  - Multi-organ failure [Fatal]
  - Acidosis [Fatal]
  - Hypotension [Fatal]
  - Pancreatitis acute [Fatal]
  - Pneumonia [Unknown]
  - Renal failure acute [Unknown]
  - Abdominal pain [Fatal]
  - Wrong technique in drug usage process [Fatal]
